FAERS Safety Report 10726780 (Version 4)
Quarter: 2015Q1

REPORT INFORMATION
  Report Type: Spontaneous
  Country: US (occurrence: US)
  Receive Date: 20150121
  Receipt Date: 20150303
  Transmission Date: 20150721
  Serious: No
  Sender: FDA-Public Use
  Company Number: US-PFIZER INC-2015020741

PATIENT
  Age: 62 Year
  Sex: Female
  Weight: 49 kg

DRUGS (2)
  1. LORAZEPAM. [Concomitant]
     Active Substance: LORAZEPAM
     Indication: SLEEP DISORDER
     Dosage: 2 MG, 1X/DAY AT NIGHT
     Dates: end: 20150112
  2. LYRICA [Suspect]
     Active Substance: PREGABALIN
     Indication: FIBROMYALGIA
     Dosage: 75 MG, 2X/DAY
     Dates: start: 20150113, end: 20150114

REACTIONS (14)
  - Throat irritation [Recovering/Resolving]
  - Thinking abnormal [Unknown]
  - Oropharyngeal spasm [Unknown]
  - Speech disorder [Recovering/Resolving]
  - Pain [Unknown]
  - Myalgia [Recovering/Resolving]
  - Dyskinesia [Recovering/Resolving]
  - Gait disturbance [Recovered/Resolved]
  - Memory impairment [Unknown]
  - Muscular weakness [Recovering/Resolving]
  - Muscle twitching [Recovering/Resolving]
  - Disturbance in attention [Recovering/Resolving]
  - Somnolence [Recovering/Resolving]
  - Dizziness [Recovering/Resolving]

NARRATIVE: CASE EVENT DATE: 20150113
